FAERS Safety Report 9555540 (Version 2)
Quarter: 2013Q3

REPORT INFORMATION
  Report Type: Spontaneous
  Country: FR (occurrence: FR)
  Receive Date: 20130926
  Receipt Date: 20130926
  Transmission Date: 20140515
  Serious: Yes (Other)
  Sender: FDA-Public Use
  Company Number: FR-JNJFOC-20121001708

PATIENT
  Age: 40 Year
  Sex: Female
  Weight: 100 kg

DRUGS (1)
  1. STELARA [Suspect]
     Indication: PSORIASIS
     Route: 058
     Dates: start: 201106, end: 20120905

REACTIONS (2)
  - Abortion spontaneous [Unknown]
  - Exposure during pregnancy [Recovered/Resolved]
